FAERS Safety Report 17480786 (Version 4)
Quarter: 2020Q4

REPORT INFORMATION
  Report Type: Spontaneous
  Country: GB (occurrence: GB)
  Receive Date: 20200301
  Receipt Date: 20201130
  Transmission Date: 20210113
  Serious: Yes (Hospitalization, Other)
  Sender: FDA-Public Use
  Company Number: GB-AMGEN-GBRSP2020034988

PATIENT
  Age: 71 Year
  Sex: Female
  Weight: 60.32 kg

DRUGS (2)
  1. ENBREL [Suspect]
     Active Substance: ETANERCEPT
     Indication: RHEUMATOID ARTHRITIS
     Dosage: 25 MG, 2X/WEEK
     Route: 065
  2. ENBREL [Suspect]
     Active Substance: ETANERCEPT
     Dosage: 20 MG, 2X/WEEK AND WHEN NEEDED
     Route: 065
     Dates: start: 2019

REACTIONS (8)
  - Productive cough [Unknown]
  - Urinary tract infection [Unknown]
  - Lower respiratory tract infection [Recovered/Resolved]
  - Disease recurrence [Unknown]
  - Asthma [Unknown]
  - Cough [Recovered/Resolved]
  - Product use issue [Unknown]
  - Wheezing [Recovered/Resolved]
